FAERS Safety Report 6189676-9 (Version None)
Quarter: 2009Q2

REPORT INFORMATION
  Report Type: 
  Country: None (occurrence: None)
  Receive Date: 20090512
  Receipt Date: 20090512
  Transmission Date: 20091009
  Serious: No
  Sender: FDA-Public Use
  Company Number: None

PATIENT
  Age: 31 Year
  Sex: Female
  Weight: 52.6173 kg

DRUGS (1)
  1. AMBIEN [Suspect]
     Indication: INSOMNIA
     Dosage: 12.5 MG AS NEEDED PO
     Route: 048
     Dates: start: 20090427, end: 20090508

REACTIONS (5)
  - ABNORMAL SLEEP-RELATED EVENT [None]
  - AGGRESSION [None]
  - AMNESIA [None]
  - SLEEP TALKING [None]
  - SLEEP-RELATED EATING DISORDER [None]
